FAERS Safety Report 6223400-6 (Version None)
Quarter: 2009Q2

REPORT INFORMATION
  Report Type: 
  Country: None (occurrence: None)
  Receive Date: 20090611
  Receipt Date: 20090531
  Transmission Date: 20091009
  Serious: Yes (Hospitalization)
  Sender: FDA-Public Use
  Company Number: CA-ELI_LILLY_AND_COMPANY-CA200906000516

PATIENT
  Age: 86 Year
  Sex: Female

DRUGS (3)
  1. FORTEO [Suspect]
     Indication: OSTEOPOROSIS
     Dosage: 20 UG, DAILY (1/D)
     Route: 058
     Dates: start: 20090107
  2. CALCIUM [Concomitant]
  3. VITAMIN D [Concomitant]

REACTIONS (3)
  - FALL [None]
  - LOWER LIMB FRACTURE [None]
  - PNEUMONIA [None]
